FAERS Safety Report 5324563-7 (Version None)
Quarter: 2007Q2

REPORT INFORMATION
  Report Type: 
  Country: None (occurrence: None)
  Receive Date: 20070514
  Receipt Date: 20070504
  Transmission Date: 20071010
  Serious: Yes (Hospitalization)
  Sender: FDA-Public Use
  Company Number: IT-PFIZER INC-2007036683

PATIENT
  Sex: Male

DRUGS (4)
  1. TORVAST [Suspect]
     Indication: CORONARY ANGIOPLASTY
     Route: 048
     Dates: start: 20070224, end: 20070416
  2. ASPIRIN [Suspect]
     Route: 048
  3. PLAVIX [Suspect]
     Route: 048
  4. SEACOR [Concomitant]
     Route: 048
     Dates: start: 20070224, end: 20070416

REACTIONS (1)
  - LIVER DISORDER [None]
